FAERS Safety Report 6455263-8 (Version None)
Quarter: 2009Q4

REPORT INFORMATION
  Report Type: 
  Country: None (occurrence: None)
  Receive Date: 20091119
  Receipt Date: 20091109
  Transmission Date: 20100525
  Serious: Yes (Hospitalization)
  Sender: FDA-Public Use
  Company Number: 2009AL007129

PATIENT
  Age: 75 Year
  Sex: Male

DRUGS (6)
  1. IBUPROFEN [Suspect]
     Indication: RESPIRATORY TRACT INFECTION
  2. FEVERALL [Suspect]
     Indication: RESPIRATORY TRACT INFECTION
  3. IMATINIB [Concomitant]
  4. IMATINIB [Concomitant]
  5. AMOXICILLIN [Concomitant]
  6. CLARYTHROMYCIN [Concomitant]

REACTIONS (8)
  - ANAL ABSCESS [None]
  - APLASTIC ANAEMIA [None]
  - BLOOD CULTURE POSITIVE [None]
  - ENTEROCOCCAL INFECTION [None]
  - FUNGAL INFECTION [None]
  - PANCYTOPENIA [None]
  - STENOTROPHOMONAS INFECTION [None]
  - TYPE III IMMUNE COMPLEX MEDIATED REACTION [None]
